FAERS Safety Report 22069164 (Version 1)
Quarter: 2023Q1

REPORT INFORMATION
  Report Type: Spontaneous
  Country: US (occurrence: None)
  Receive Date: 20230306
  Receipt Date: 20230306
  Transmission Date: 20230418
  Serious: Yes (Life-Threatening, Hospitalization)
  Sender: FDA-Public Use
  Company Number: None

PATIENT
  Age: 30 Year
  Sex: Female
  Weight: 84.8 kg

DRUGS (3)
  1. ONDANSETRON [Suspect]
     Active Substance: ONDANSETRON
     Indication: Nausea
     Dosage: FREQUENCY : ONCE;?
     Route: 042
     Dates: start: 20230215, end: 20230216
  2. ONDANSETRON [Suspect]
     Active Substance: ONDANSETRON
     Indication: Vomiting
  3. ISOVUE 370 [Suspect]
     Active Substance: IOPAMIDOL
     Indication: Imaging procedure
     Dosage: FREQUENCY : ONCE;?
     Route: 042
     Dates: start: 20230215, end: 20230215

REACTIONS (5)
  - Contrast media reaction [None]
  - Contrast media allergy [None]
  - Electrocardiogram QT prolonged [None]
  - Supraventricular tachycardia [None]
  - Cardiac arrest [None]

NARRATIVE: CASE EVENT DATE: 20230215
